FAERS Safety Report 21530479 (Version 1)
Quarter: 2022Q4

REPORT INFORMATION
  Report Type: Spontaneous
  Country: TR (occurrence: TR)
  Receive Date: 20221031
  Receipt Date: 20221031
  Transmission Date: 20230113
  Serious: Yes (Hospitalization, Other)
  Sender: FDA-Public Use
  Company Number: TR-GLAXOSMITHKLINE-TR2022GSK155038

PATIENT

DRUGS (4)
  1. LAMOTRIGINE [Suspect]
     Active Substance: LAMOTRIGINE
     Indication: Bipolar disorder
     Dosage: 50 MG, QD
  2. LAMOTRIGINE [Suspect]
     Active Substance: LAMOTRIGINE
     Indication: Personality disorder
     Dosage: 100 MG
  3. OLANZAPINE [Concomitant]
     Active Substance: OLANZAPINE
     Indication: Bipolar disorder
     Dosage: 10 MG, QD
  4. OLANZAPINE [Concomitant]
     Active Substance: OLANZAPINE
     Indication: Personality disorder

REACTIONS (19)
  - Stevens-Johnson syndrome [Recovered/Resolved]
  - Rash [Recovered/Resolved]
  - Pruritus [Recovered/Resolved]
  - Swelling face [Recovered/Resolved]
  - Lip swelling [Recovered/Resolved]
  - Angioedema [Recovered/Resolved]
  - Urticaria [Recovered/Resolved]
  - Rash papular [Recovered/Resolved]
  - Skin plaque [Recovered/Resolved]
  - Blister [Recovered/Resolved]
  - Scab [Recovered/Resolved]
  - Impetigo [Recovered/Resolved]
  - Rash vesicular [Recovered/Resolved]
  - Corynebacterium infection [Recovered/Resolved]
  - Skin maceration [Recovered/Resolved]
  - Wound haemorrhage [Recovered/Resolved]
  - Oral mucosa erosion [Recovered/Resolved]
  - Rash macular [Not Recovered/Not Resolved]
  - Pustule [Not Recovered/Not Resolved]
